FAERS Safety Report 8950330 (Version 1)
Quarter: 2012Q4

REPORT INFORMATION
  Report Type: Spontaneous
  Country: US (occurrence: None)
  Receive Date: 20121130
  Receipt Date: 20121130
  Transmission Date: 20130627
  Serious: No
  Sender: FDA-Public Use
  Company Number: None

PATIENT
  Age: 92 Year
  Sex: Male

DRUGS (11)
  1. XARELTO [Suspect]
     Indication: ATRIAL FIBRILLATION
     Route: 048
     Dates: start: 20120217
  2. FOCUS MULTIVITAMIN [Concomitant]
  3. LASIX [Concomitant]
  4. LISINOPRIL [Concomitant]
  5. METOPROLOL [Concomitant]
  6. MULTIVITAMIN [Concomitant]
  7. NIACIN [Concomitant]
  8. OMEGA 3 [Concomitant]
  9. OMEPRAZOLE [Concomitant]
  10. TERAZOSIN [Concomitant]
  11. TESTOSTERONE CYPIONATE [Concomitant]

REACTIONS (1)
  - Petechiae [None]
